FAERS Safety Report 16126299 (Version 10)
Quarter: 2020Q4

REPORT INFORMATION
  Report Type: Report from Study
  Country: US (occurrence: US)
  Receive Date: 20190328
  Receipt Date: 20201223
  Transmission Date: 20210113
  Serious: Yes (Other)
  Sender: FDA-Public Use
  Company Number: PHHY2018US201260

PATIENT
  Age: 9 Year
  Sex: Male

DRUGS (5)
  1. KYMRIAH [Suspect]
     Active Substance: TISAGENLECLEUCEL
     Indication: B-CELL TYPE ACUTE LEUKAEMIA
     Dosage: UNK
     Route: 041
     Dates: start: 20180122
  2. KYMRIAH [Suspect]
     Active Substance: TISAGENLECLEUCEL
     Dosage: UNK
     Route: 041
     Dates: start: 20200306
  3. FLUDARABINE [Concomitant]
     Active Substance: FLUDARABINE PHOSPHATE
     Indication: CHEMOTHERAPY
     Dosage: UNK
     Route: 065
  4. CYCLOPHOSPHAMIDE. [Concomitant]
     Active Substance: CYCLOPHOSPHAMIDE
     Indication: CHEMOTHERAPY
     Dosage: UNK
     Route: 065
  5. KYMRIAH [Suspect]
     Active Substance: TISAGENLECLEUCEL
     Dosage: UNK
     Route: 041
     Dates: start: 20180618

REACTIONS (18)
  - White blood cell count decreased [Unknown]
  - Off label use [Unknown]
  - Hypotension [Unknown]
  - Cytopenia [Unknown]
  - Pyrexia [Unknown]
  - Neutropenia [Unknown]
  - Acute lymphocytic leukaemia recurrent [Unknown]
  - Haemoglobin decreased [Unknown]
  - Haematocrit decreased [Unknown]
  - Drug level decreased [Unknown]
  - Lymphocyte count decreased [Unknown]
  - Thrombocytopenia [Unknown]
  - Neutrophil count decreased [Unknown]
  - Neutrophil count increased [Unknown]
  - Cytokine release syndrome [Recovered/Resolved]
  - White blood cell count increased [Unknown]
  - Treatment failure [Unknown]
  - White blood cell count decreased [Recovered/Resolved]
